FAERS Safety Report 7106232-6 (Version None)
Quarter: 2010Q4

REPORT INFORMATION
  Report Type: 
  Country: None (occurrence: None)
  Receive Date: 20101116
  Receipt Date: 20101103
  Transmission Date: 20110411
  Serious: Yes (Other)
  Sender: FDA-Public Use
  Company Number: US-ELI_LILLY_AND_COMPANY-US201010003032

PATIENT
  Sex: Female

DRUGS (3)
  1. CYMBALTA [Suspect]
     Indication: DEPRESSION
  2. AMOXICILLIN [Concomitant]
  3. FLOVENT [Concomitant]
     Indication: ASTHMA

REACTIONS (6)
  - DIZZINESS [None]
  - DRUG HYPERSENSITIVITY [None]
  - LIVER FUNCTION TEST ABNORMAL [None]
  - OROPHARYNGEAL PAIN [None]
  - TINNITUS [None]
  - WHEEZING [None]
